FAERS Safety Report 24108175 (Version 1)
Quarter: 2024Q3

REPORT INFORMATION
  Report Type: Report from Study
  Country: US (occurrence: None)
  Receive Date: 20240718
  Receipt Date: 20240718
  Transmission Date: 20241016
  Serious: Yes (Hospitalization, Other)
  Sender: ASTRAZENECA
  Company Number: 2021A210468

PATIENT
  Sex: Male
  Weight: 93.4 kg

DRUGS (5)
  1. CALQUENCE [Suspect]
     Active Substance: ACALABRUTINIB
     Indication: B-cell lymphoma
     Route: 048
  2. LASIX [Suspect]
     Active Substance: FUROSEMIDE
     Route: 065
  3. FENTANYL [Concomitant]
     Active Substance: FENTANYL\FENTANYL CITRATE
     Indication: Pain
  4. OXYCODONE [Concomitant]
     Active Substance: OXYCODONE
     Indication: Pain
  5. ALONDRANATE [Concomitant]
     Indication: Neck pain

REACTIONS (20)
  - Fall [Unknown]
  - Injury [Unknown]
  - Joint injury [Unknown]
  - Bone contusion [Unknown]
  - Atrial fibrillation [Not Recovered/Not Resolved]
  - Contusion [Not Recovered/Not Resolved]
  - Bone pain [Not Recovered/Not Resolved]
  - Fatigue [Unknown]
  - Headache [Not Recovered/Not Resolved]
  - Nausea [Not Recovered/Not Resolved]
  - Neck pain [Unknown]
  - Pyrexia [Not Recovered/Not Resolved]
  - Dyspnoea [Not Recovered/Not Resolved]
  - Appetite disorder [Not Recovered/Not Resolved]
  - Weight decreased [Unknown]
  - Abdominal discomfort [Unknown]
  - Pruritus [Not Recovered/Not Resolved]
  - Oedema [Not Recovered/Not Resolved]
  - Amnesia [Not Recovered/Not Resolved]
  - Renal impairment [Unknown]
